FAERS Safety Report 5277784-6 (Version None)
Quarter: 2007Q1

REPORT INFORMATION
  Report Type: 
  Country: None (occurrence: None)
  Receive Date: 20070327
  Receipt Date: 20070313
  Transmission Date: 20070707
  Serious: Yes (Death)
  Sender: FDA-Public Use
  Company Number: JP-ELI_LILLY_AND_COMPANY-JP200703000980

PATIENT
  Age: 70 Year
  Sex: Female
  Weight: 80 kg

DRUGS (9)
  1. EVISTA [Suspect]
     Indication: OSTEOPOROSIS POSTMENOPAUSAL
     Dosage: 60 MG, DAILY (1/D)
     Route: 048
     Dates: start: 20050512, end: 20060201
  2. ADALAT CR /THA/ [Concomitant]
  3. LIPITOR [Concomitant]
  4. ASPIRIN [Concomitant]
  5. SIGMART [Concomitant]
  6. LOXONIN [Concomitant]
  7. ALINAMIN /JPN/ [Concomitant]
  8. MYONAL [Concomitant]
  9. NITRODERM [Concomitant]

REACTIONS (1)
  - CARDIAC FAILURE ACUTE [None]
